FAERS Safety Report 11515661 (Version 1)
Quarter: 2015Q3

REPORT INFORMATION
  Report Type: Spontaneous
  Country: ZA (occurrence: ZA)
  Receive Date: 20150916
  Receipt Date: 20150916
  Transmission Date: 20151125
  Serious: Yes (Other)
  Sender: FDA-Public Use
  Company Number: ALCN2015ZA005607

PATIENT
  Age: 30 Year
  Sex: Male

DRUGS (3)
  1. DUOTRAV [BAC] [Suspect]
     Active Substance: TIMOLOL\TRAVOPROST
     Indication: GLAUCOMA
     Dosage: 1 GTT, QD AT NIGHT
     Route: 047
     Dates: start: 201503, end: 201509
  2. EPILIM [Concomitant]
     Active Substance: VALPROATE SODIUM
     Indication: EPILEPSY
     Dosage: 1 DF, QD IN THE MORNING
     Route: 048
     Dates: start: 2010, end: 201508
  3. EPILIM [Concomitant]
     Active Substance: VALPROATE SODIUM
     Dosage: 500 MG IN THE MORNING AND 200 MG AT NIGHT
     Dates: start: 201508

REACTIONS (7)
  - Epilepsy [Recovering/Resolving]
  - Eye irritation [Recovered/Resolved]
  - Dark circles under eyes [Not Recovered/Not Resolved]
  - Growth of eyelashes [Not Recovered/Not Resolved]
  - Eyelash thickening [Not Recovered/Not Resolved]
  - Headache [Recovered/Resolved]
  - Iris hyperpigmentation [Not Recovered/Not Resolved]

NARRATIVE: CASE EVENT DATE: 201508
